FAERS Safety Report 6517463-8 (Version None)
Quarter: 2009Q4

REPORT INFORMATION
  Report Type: 
  Country: None (occurrence: None)
  Receive Date: 20091224
  Receipt Date: 20091216
  Transmission Date: 20100525
  Serious: Yes (Hospitalization, Other)
  Sender: FDA-Public Use
  Company Number: US-ASTRAZENECA-2007UW03874

PATIENT
  Age: 42 Year
  Sex: Female
  Weight: 95.3 kg

DRUGS (40)
  1. SEROQUEL [Suspect]
     Indication: DEPRESSION
     Dosage: 50-1000 MG
     Route: 048
     Dates: start: 20030618
  2. SEROQUEL [Suspect]
     Indication: INSOMNIA
     Dosage: 50-1000 MG
     Route: 048
     Dates: start: 20030618
  3. SEROQUEL [Suspect]
     Indication: MIGRAINE
     Dosage: 50-1000 MG
     Route: 048
     Dates: start: 20030618
  4. SEROQUEL [Suspect]
     Indication: SLEEP DISORDER
     Dosage: 50-1000 MG
     Route: 048
     Dates: start: 20030618
  5. SEROQUEL [Suspect]
     Dosage: 100 TO 400 MG
     Route: 048
     Dates: start: 20030628
  6. SEROQUEL [Suspect]
     Dosage: 100 TO 400 MG
     Route: 048
     Dates: start: 20030628
  7. SEROQUEL [Suspect]
     Dosage: 100 TO 400 MG
     Route: 048
     Dates: start: 20030628
  8. SEROQUEL [Suspect]
     Dosage: 100 TO 400 MG
     Route: 048
     Dates: start: 20030628
  9. SEROQUEL [Suspect]
     Dosage: 100 MG - 300 MG
     Route: 048
     Dates: start: 20050728
  10. SEROQUEL [Suspect]
     Dosage: 100 MG - 300 MG
     Route: 048
     Dates: start: 20050728
  11. SEROQUEL [Suspect]
     Dosage: 100 MG - 300 MG
     Route: 048
     Dates: start: 20050728
  12. SEROQUEL [Suspect]
     Dosage: 100 MG - 300 MG
     Route: 048
     Dates: start: 20050728
  13. CYMBALTA [Concomitant]
     Dates: start: 20060614
  14. CYMBALTA [Concomitant]
     Dates: start: 20081017
  15. REMERON [Concomitant]
     Dates: start: 20050101
  16. REMERON [Concomitant]
     Dates: start: 20081017
  17. DEPAKOTE [Concomitant]
     Dates: start: 20060803
  18. DEPAKOTE [Concomitant]
     Route: 048
     Dates: start: 20081017
  19. MIRTAZAPINE [Concomitant]
  20. LEXAPRO [Concomitant]
     Dates: start: 20030103
  21. TIZANIDINE HCL [Concomitant]
     Dates: start: 20030130
  22. LAMICTAL [Concomitant]
     Dates: start: 20000424
  23. LAMICTAL [Concomitant]
     Dates: start: 20001107
  24. NEURONTIN [Concomitant]
     Dosage: 3600-4000MG
     Dates: start: 19951211
  25. NEURONTIN [Concomitant]
     Dates: start: 20001107
  26. DOXEPIN HCL [Concomitant]
     Dosage: 200-400MG
     Dates: start: 19951211
  27. DOXEPIN HCL [Concomitant]
     Dates: start: 20001107
  28. PHENERGAN HCL [Concomitant]
     Indication: MIGRAINE
     Dosage: 50MG, 25MG EVERY FOUR TO SIX HOURS
     Dates: start: 20000103
  29. PREVACID [Concomitant]
     Dates: start: 20010208
  30. ZOCOR [Concomitant]
     Dates: start: 20030721
  31. LODINE XL [Concomitant]
     Dates: start: 20040329
  32. MONOPRIL [Concomitant]
     Dosage: 5-10 MG
     Route: 048
     Dates: start: 20031212
  33. TOPAMAX [Concomitant]
     Dosage: 25-50 MG
     Dates: start: 20010226
  34. PERCOCET [Concomitant]
     Dosage: 5/30,25 QID, PRN,5/325 MG FOUR TIMES A DAY
     Dates: start: 20020711
  35. LORATADINE [Concomitant]
     Dates: start: 20050819
  36. TOPROL-XL [Concomitant]
     Route: 048
     Dates: start: 20050819
  37. ASPIRIN [Concomitant]
     Route: 048
     Dates: start: 20050819
  38. REGLAN [Concomitant]
     Route: 042
     Dates: start: 20050819
  39. LYRICA [Concomitant]
     Route: 048
     Dates: start: 20060306
  40. ATIVAN [Concomitant]
     Route: 048
     Dates: start: 20081017

REACTIONS (13)
  - ANKLE FRACTURE [None]
  - BLOOD GLUCOSE INCREASED [None]
  - DIABETES MELLITUS INADEQUATE CONTROL [None]
  - FRACTURE DISPLACEMENT [None]
  - JOINT DISLOCATION [None]
  - LIGAMENT RUPTURE [None]
  - LIMB INJURY [None]
  - LOWER LIMB FRACTURE [None]
  - MEDICAL DEVICE REMOVAL [None]
  - NEUROPATHY PERIPHERAL [None]
  - PERIPHERAL SENSORIMOTOR NEUROPATHY [None]
  - POLYNEUROPATHY [None]
  - TYPE 2 DIABETES MELLITUS [None]
